FAERS Safety Report 19260683 (Version 1)
Quarter: 2021Q2

REPORT INFORMATION
  Report Type: Spontaneous
  Country: CN (occurrence: CN)
  Receive Date: 20210514
  Receipt Date: 20210514
  Transmission Date: 20210717
  Serious: Yes (Other)
  Sender: FDA-Public Use
  Company Number: CN-BAXTER-2021BAX011219

PATIENT
  Age: 37 Year
  Sex: Female
  Weight: 62 kg

DRUGS (12)
  1. ENDOXAN [Suspect]
     Active Substance: CYCLOPHOSPHAMIDE
     Dosage: CYCLOPHOSPHAMIDE + SODIUM CHLORIDE, FIRST 3 TIMES
     Route: 041
  2. SODIUM CHLORIDE. [Suspect]
     Active Substance: SODIUM CHLORIDE
     Dosage: SODIUM CHLORIDE 100 ML + ALBUMIN PACLITAXEL 420 MG, FOURTH TIME
     Route: 041
     Dates: start: 20210409, end: 20210409
  3. ENDOXAN [Suspect]
     Active Substance: CYCLOPHOSPHAMIDE
     Indication: BREAST CANCER FEMALE
     Dosage: CYCLOPHOSPHAMIDE 0.98 G + SODIUM CHLORIDE 500 ML, FOURTH TIME
     Route: 041
     Dates: start: 20210409, end: 20210409
  4. ALBUMIN PACLITAXEL [Suspect]
     Active Substance: PACLITAXEL
     Dosage: ALBUMIN PACLITAXEL + SODIUM CHLORIDE, FIRST 3 TIMES
     Route: 041
  5. ALBUMIN PACLITAXEL [Suspect]
     Active Substance: PACLITAXEL
     Dosage: ALBUMIN PACLITAXEL + SODIUM CHLORIDE (DOSE RE?INTRODUCED)
     Route: 041
  6. SODIUM CHLORIDE. [Suspect]
     Active Substance: SODIUM CHLORIDE
     Dosage: SODIUM CHLORIDE + CYCLOPHOSPHAMIDE (DOSE RE?INTRODUCED)
     Route: 041
  7. SODIUM CHLORIDE. [Suspect]
     Active Substance: SODIUM CHLORIDE
     Dosage: SODIUM CHLORIDE + ALBUMIN PACLITAXEL (DOSE RE?INTRODUCED)
     Route: 041
  8. ENDOXAN [Suspect]
     Active Substance: CYCLOPHOSPHAMIDE
     Dosage: CYCLOPHOSPHAMIDE + SODIUM CHLORIDE (DOSE RE?INTRODUCED)
     Route: 041
  9. ALBUMIN PACLITAXEL [Suspect]
     Active Substance: PACLITAXEL
     Indication: BREAST CANCER FEMALE
     Dosage: ALBUMIN PACLITAXEL 420 MG + SODIUM CHLORIDE 100 ML, FOURTH TIME
     Route: 041
     Dates: start: 20210409, end: 20210409
  10. SODIUM CHLORIDE. [Suspect]
     Active Substance: SODIUM CHLORIDE
     Indication: MEDICATION DILUTION
     Dosage: SODIUM CHLORIDE 500 ML + CYCLOPHOSPHAMIDE 0.98 G, FOURTH TIME
     Route: 041
     Dates: start: 20210409, end: 20210409
  11. SODIUM CHLORIDE. [Suspect]
     Active Substance: SODIUM CHLORIDE
     Dosage: SODIUM CHLORIDE + ALBUMIN PACLITAXEL, FIRST 3 TIMES
     Route: 041
  12. SODIUM CHLORIDE. [Suspect]
     Active Substance: SODIUM CHLORIDE
     Dosage: SODIUM CHLORIDE + CYCLOPHOSPHAMIDE, FIRST 3 TIMES
     Route: 041

REACTIONS (1)
  - Myocardial necrosis marker increased [Unknown]

NARRATIVE: CASE EVENT DATE: 20210428
